FAERS Safety Report 12182325 (Version 1)
Quarter: 2016Q1

REPORT INFORMATION
  Report Type: Spontaneous
  Country: US (occurrence: US)
  Receive Date: 20160316
  Receipt Date: 20160316
  Transmission Date: 20160526
  Serious: No
  Sender: FDA-Public Use
  Company Number: US-HOSPIRA-2942531

PATIENT
  Sex: Male

DRUGS (1)
  1. STERILE WATER [Suspect]
     Active Substance: WATER
     Indication: PRODUCT USED FOR UNKNOWN INDICATION
     Dosage: 0.5 CC - 1CC
     Route: 058
     Dates: start: 20150706, end: 20150706

REACTIONS (7)
  - Injection site pain [Recovered/Resolved]
  - Pain [Recovered/Resolved]
  - Off label use [Recovered/Resolved]
  - Product contamination [Recovered/Resolved]
  - Expired product administered [Recovered/Resolved]
  - Product label issue [Recovered/Resolved]
  - Intentional product misuse [Recovered/Resolved]

NARRATIVE: CASE EVENT DATE: 20150706
